FAERS Safety Report 19640398 (Version 1)
Quarter: 2021Q3

REPORT INFORMATION
  Report Type: Spontaneous
  Country: US (occurrence: US)
  Receive Date: 20210729
  Receipt Date: 20210729
  Transmission Date: 20211014
  Serious: No
  Sender: FDA-Public Use
  Company Number: US-PERRIGO-21US002977

PATIENT
  Age: 32 Year
  Sex: Male
  Weight: 116.55 kg

DRUGS (2)
  1. FINASTERIDE. [Suspect]
     Active Substance: FINASTERIDE
     Indication: ALOPECIA
     Dosage: UNKNOWN, UNKNOWN
     Route: 048
     Dates: start: 20210201, end: 20210220
  2. MINOXIDIL. [Suspect]
     Active Substance: MINOXIDIL
     Indication: ALOPECIA
     Dosage: 1 ML, BID
     Route: 061
     Dates: start: 20210201, end: 20210220

REACTIONS (1)
  - Weight increased [Recovered/Resolved]

NARRATIVE: CASE EVENT DATE: 202102
